FAERS Safety Report 5400011-3 (Version None)
Quarter: 2007Q3

REPORT INFORMATION
  Report Type: 
  Country: None (occurrence: None)
  Receive Date: 20070725
  Receipt Date: 20070719
  Transmission Date: 20080115
  Serious: Yes (Death, Life-Threatening, Hospitalization, Other)
  Sender: FDA-Public Use
  Company Number: 2007SP010230

PATIENT
  Age: 85 Year
  Sex: Female
  Weight: 68 kg

DRUGS (6)
  1. TEMODAL [Suspect]
     Indication: GLIOBLASTOMA
     Dosage: 125 MG/M2; QD; PO
     Route: 048
     Dates: start: 20070512, end: 20070518
  2. DEXAMETHASONE TAB [Suspect]
     Indication: BRAIN OEDEMA
     Dosage: 4 MG; QD; PO, 4 MG; TID
     Route: 048
     Dates: start: 20070301, end: 20070520
  3. DEXAMETHASONE TAB [Suspect]
     Indication: BRAIN OEDEMA
     Dosage: 4 MG; QD; PO, 4 MG; TID
     Route: 048
     Dates: start: 20070520, end: 20070522
  4. GRANISETRON [Concomitant]
  5. VALPROATE SODIUM [Concomitant]
  6. OMEPRAZOLE [Concomitant]

REACTIONS (4)
  - DEHYDRATION [None]
  - GENERAL PHYSICAL HEALTH DETERIORATION [None]
  - LEUKOPENIA [None]
  - SEPSIS [None]
